FAERS Safety Report 5663906-1 (Version None)
Quarter: 2008Q1

REPORT INFORMATION
  Report Type: 
  Country: None (occurrence: None)
  Receive Date: 20080311
  Receipt Date: 20080306
  Transmission Date: 20080703
  Serious: Yes (Death, Hospitalization)
  Sender: FDA-Public Use
  Company Number: 2008SP001932

PATIENT
  Age: 78 Year
  Sex: Female
  Weight: 65.9 kg

DRUGS (18)
  1. TEMOZOLOMIDE [Suspect]
     Indication: GLIOBLASTOMA
     Dosage: QD;PO
     Route: 048
     Dates: start: 20070704, end: 20070814
  2. TEMOZOLOMIDE [Suspect]
     Indication: GLIOBLASTOMA
     Dosage: QD;PO
     Route: 048
     Dates: start: 20070913, end: 20080115
  3. DEXAMETHASONE TAB [Suspect]
     Indication: SWELLING
     Dosage: 8 MG;QD, 6 MG, 4 MG;QD, 4 MG;BID;PO
     Route: 048
     Dates: start: 20070620, end: 20070731
  4. DEXAMETHASONE TAB [Suspect]
     Indication: SWELLING
     Dosage: 8 MG;QD, 6 MG, 4 MG;QD, 4 MG;BID;PO
     Route: 048
     Dates: start: 20070801, end: 20070807
  5. DEXAMETHASONE TAB [Suspect]
     Indication: SWELLING
     Dosage: 8 MG;QD, 6 MG, 4 MG;QD, 4 MG;BID;PO
     Route: 048
     Dates: start: 20070708, end: 20070903
  6. DEXAMETHASONE TAB [Suspect]
     Indication: SWELLING
     Dosage: 8 MG;QD, 6 MG, 4 MG;QD, 4 MG;BID;PO
     Route: 048
     Dates: start: 20080104
  7. PHENYTOIN [Concomitant]
  8. PARACETAMOL [Concomitant]
  9. DOMPERIDONE [Concomitant]
  10. CO-TRIMOXAZOLE [Concomitant]
  11. ONDANSETRON [Concomitant]
  12. CEFTRIAXONE [Concomitant]
  13. GENTAMICIN [Concomitant]
  14. NYSTATIN [Concomitant]
  15. CLARITHROMYCIN [Concomitant]
  16. CIPROFLOXACIN [Concomitant]
  17. NEUPOGEN [Concomitant]
  18. ORCIPRENALINE [Concomitant]

REACTIONS (8)
  - BLOOD ALBUMIN DECREASED [None]
  - BLOOD CREATININE DECREASED [None]
  - HYPERGLYCAEMIA [None]
  - LYMPHOCYTE COUNT DECREASED [None]
  - MONOCYTE COUNT DECREASED [None]
  - PLATELET COUNT DECREASED [None]
  - PNEUMONIA ASPIRATION [None]
  - URINARY TRACT INFECTION [None]
